FAERS Safety Report 11234074 (Version 1)
Quarter: 2015Q3

REPORT INFORMATION
  Report Type: Spontaneous
  Country: PL (occurrence: PL)
  Receive Date: 20150702
  Receipt Date: 20150702
  Transmission Date: 20151125
  Serious: Yes (Other)
  Sender: FDA-Public Use
  Company Number: PHHY2015PL067263

PATIENT
  Age: 77 Year
  Sex: Male

DRUGS (1)
  1. RIVASTIGMINE SANDOZ [Suspect]
     Active Substance: RIVASTIGMINE
     Indication: DEMENTIA ALZHEIMER^S TYPE
     Dosage: 6 MG, BID
     Route: 048

REACTIONS (11)
  - Drug withdrawal syndrome [Unknown]
  - Quality of life decreased [Unknown]
  - Dysphemia [Unknown]
  - Drug ineffective [Unknown]
  - Negativism [Unknown]
  - Abnormal behaviour [Unknown]
  - Drug dependence [Unknown]
  - Disorientation [Unknown]
  - Agitation [Unknown]
  - Aggression [Unknown]
  - Anxiety [Unknown]
